FAERS Safety Report 21744073 (Version 1)
Quarter: 2022Q4

REPORT INFORMATION
  Report Type: Spontaneous
  Country: PT (occurrence: PT)
  Receive Date: 20221218
  Receipt Date: 20221218
  Transmission Date: 20230113
  Serious: Yes (Hospitalization, Other)
  Sender: FDA-Public Use
  Company Number: PT-INFECTO-9799

PATIENT
  Age: 49 Year
  Sex: Male

DRUGS (4)
  1. FENTANYL [Interacting]
     Active Substance: FENTANYL
     Indication: Spinal fusion surgery
     Dosage: UNK
     Route: 042
  2. ONDANSETRON [Interacting]
     Active Substance: ONDANSETRON
     Indication: Product used for unknown indication
     Dosage: UNK
     Route: 065
  3. TRAZODONE [Interacting]
     Active Substance: TRAZODONE HYDROCHLORIDE
     Indication: Depression
     Dosage: UNK
     Route: 065
  4. METHYLPHENIDATE [Interacting]
     Active Substance: METHYLPHENIDATE
     Indication: Attention deficit hyperactivity disorder
     Dosage: UNK
     Route: 065

REACTIONS (11)
  - Serotonin syndrome [Recovered/Resolved]
  - Unresponsive to stimuli [Recovered/Resolved]
  - Hyperthermia [Recovered/Resolved]
  - Mental status changes [Recovered/Resolved]
  - Hyperkinesia [Recovered/Resolved]
  - Binocular eye movement disorder [Recovered/Resolved]
  - Hypertension [Recovered/Resolved]
  - Tachycardia [Recovered/Resolved]
  - Agitation [Recovered/Resolved]
  - Drug interaction [Recovered/Resolved]
  - Akathisia [Recovered/Resolved]
